FAERS Safety Report 21876339 (Version 1)
Quarter: 2023Q1

REPORT INFORMATION
  Report Type: Spontaneous
  Country: US (occurrence: US)
  Receive Date: 20230118
  Receipt Date: 20230118
  Transmission Date: 20230418
  Serious: Yes (Other)
  Sender: FDA-Public Use
  Company Number: US-MLMSERVICE-20221229-4009575-1

PATIENT
  Sex: Female

DRUGS (1)
  1. PREDNISONE [Suspect]
     Active Substance: PREDNISONE
     Indication: Crohn^s disease
     Dosage: UNKNOWN
     Route: 065

REACTIONS (3)
  - Cutaneous vasculitis [Unknown]
  - Condition aggravated [Unknown]
  - Drug ineffective [Unknown]
